FAERS Safety Report 10453914 (Version 2)
Quarter: 2014Q3

REPORT INFORMATION
  Report Type: Report from Study
  Country: JP (occurrence: JP)
  Receive Date: 20140915
  Receipt Date: 20140915
  Transmission Date: 20150326
  Serious: Yes (Hospitalization, Disabling)
  Sender: FDA-Public Use
  Company Number: JP-CELGENEUS-087-10004-14083966

PATIENT
  Age: 66 Year
  Sex: Male
  Weight: 66.2 kg

DRUGS (33)
  1. COVERSYL [Concomitant]
     Active Substance: PERINDOPRIL
     Dosage: 2 MILLIGRAM
     Route: 048
     Dates: start: 20140903
  2. FLUITRAN [Concomitant]
     Active Substance: TRICHLORMETHIAZIDE
     Dosage: 2 MILLIGRAM
     Route: 048
     Dates: start: 20140903
  3. ZOSYN [Concomitant]
     Active Substance: PIPERACILLIN SODIUM\TAZOBACTAM SODIUM
     Indication: INFECTION
     Dosage: 13.5 GRAM
     Route: 041
     Dates: start: 20140827, end: 20140902
  4. AZULENE [Concomitant]
     Active Substance: AZULENE
     Indication: RASH
     Dosage: .099 MILLIGRAM
     Route: 061
     Dates: start: 20140826
  5. MOMETASONE FUROATE. [Concomitant]
     Active Substance: MOMETASONE FUROATE
     Indication: PSORIASIS
     Dosage: .2 PERCENT
     Route: 061
     Dates: start: 20140826
  6. ATORVASTATIN CALCIUM HYDRATE [Concomitant]
     Active Substance: ATORVASTATIN CALCIUM
     Indication: DYSLIPIDAEMIA
     Dosage: 10 MILLIGRAM
     Dates: start: 20140818
  7. ATORVASTATIN CALCIUM HYDRATE [Concomitant]
     Active Substance: ATORVASTATIN CALCIUM
     Dosage: 10 MILLIGRAM
     Dates: start: 20140903
  8. PERINDOPRIL ERBUMINE. [Concomitant]
     Active Substance: PERINDOPRIL ERBUMINE
     Dosage: 400 MILLIGRAM
     Dates: start: 20140822
  9. RAMELTEON [Concomitant]
     Active Substance: RAMELTEON
     Indication: INSOMNIA
     Dosage: 4 MILLIGRAM
     Dates: start: 20140822
  10. SOLDEM 3A [Concomitant]
     Active Substance: CARBOHYDRATES\POTASSIUM CHLORIDE\SODIUM CHLORIDE\SODIUM LACTATE
     Indication: NUTRITIONAL SUPPLEMENTATION
     Dosage: 500 MILLIGRAM
     Route: 041
     Dates: start: 20140818, end: 20140818
  11. SOLDEM 3A [Concomitant]
     Active Substance: CARBOHYDRATES\POTASSIUM CHLORIDE\SODIUM CHLORIDE\SODIUM LACTATE
     Dosage: 1000 MILLIGRAM
     Route: 041
     Dates: start: 20140819, end: 20140819
  12. RAMELTEON [Concomitant]
     Active Substance: RAMELTEON
     Dosage: 4 MILLIGRAM
     Dates: start: 20140903
  13. BIFIDOBACTERIUM [Concomitant]
     Active Substance: BIFIDOBACTERIUM LONGUM
     Indication: PROPHYLAXIS
     Dosage: 6 GRAM
     Dates: start: 20140826
  14. WHITE PETROLATUM [Concomitant]
     Active Substance: PETROLATUM
     Indication: PSORIASIS
     Dosage: 1 EXPOSURE
     Route: 061
     Dates: start: 20140501
  15. LANSOPRAZOLE. [Concomitant]
     Active Substance: LANSOPRAZOLE
     Dosage: 15 MILLIGRAM
     Dates: start: 20140903
  16. TRICHLORMETHIAZIDE [Concomitant]
     Active Substance: TRICHLORMETHIAZIDE
     Indication: HYPERTENSION
     Dosage: 4 MILLIGRAM
     Dates: start: 20140819, end: 20140821
  17. CC-10004 [Suspect]
     Active Substance: APREMILAST
     Indication: PSORIASIS
     Dosage: 20 MG BID
     Route: 048
     Dates: start: 20140529
  18. TERBINAFINE HYDROCHLORIDE. [Concomitant]
     Active Substance: TERBINAFINE HYDROCHLORIDE
     Indication: TINEA INFECTION
     Dosage: 1 PERCENT
     Route: 061
     Dates: start: 20131026, end: 20140625
  19. LOXOPROFEN SODIUM HYDRATE [Concomitant]
     Active Substance: LOXOPROFEN SODIUM DIHYDRATE
     Indication: TENSION HEADACHE
     Dosage: 100 MILLIGRAM
     Route: 065
     Dates: start: 20140822
  20. CC-10004 [Suspect]
     Active Substance: APREMILAST
     Dosage: 20 MG BID
     Route: 048
     Dates: start: 20140818, end: 20140818
  21. WHITE PETROLATUM [Concomitant]
     Active Substance: PETROLATUM
     Dosage: 1 EXPOSURE
     Route: 061
     Dates: start: 20140826
  22. KETOCONAZOLE. [Concomitant]
     Active Substance: KETOCONAZOLE
     Indication: TINEA INFECTION
     Dosage: 2 PERCENT
     Route: 061
     Dates: start: 20140626
  23. LULICONAZOLE [Concomitant]
     Active Substance: LULICONAZOLE
     Indication: TINEA INFECTION
     Dosage: 1 PERCENT
     Route: 061
     Dates: start: 20140626
  24. LANSOPRAZOLE. [Concomitant]
     Active Substance: LANSOPRAZOLE
     Indication: PROPHYLAXIS
     Dosage: 15 MILLIGRAM
     Dates: start: 20140818
  25. VITAMEDIN [Concomitant]
     Active Substance: CYANOCOBALAMIN\PYRIDOXINE HYDROCHLORIDE\THIAMINE
     Indication: NUTRITIONAL SUPPLEMENTATION
     Dosage: 1
     Route: 041
     Dates: start: 20140818, end: 20140819
  26. MAXACALCITOL [Concomitant]
     Active Substance: MAXACALCITOL
     Indication: PSORIASIS
     Dosage: 10 GRAM
     Route: 061
     Dates: start: 20140826
  27. COVERSYL [Concomitant]
     Active Substance: PERINDOPRIL
     Indication: BLOOD PRESSURE
     Dosage: 2 MILLIGRAM
     Route: 048
     Dates: start: 20140829
  28. TRICHLORMETHIAZIDE [Concomitant]
     Active Substance: TRICHLORMETHIAZIDE
     Dosage: 4 MILLIGRAM
     Dates: start: 20140822
  29. SALINE [Concomitant]
     Active Substance: SODIUM CHLORIDE
     Indication: PRODUCT USED FOR UNKNOWN INDICATION
     Dosage: 500 MILLIGRAM
     Route: 041
     Dates: start: 20140816, end: 20140816
  30. PREDNISOLONE. [Concomitant]
     Active Substance: PREDNISOLONE
     Indication: PSORIASIS
     Dosage: 1 PERCENT
     Route: 061
     Dates: start: 20140501
  31. FLUITRAN [Concomitant]
     Active Substance: TRICHLORMETHIAZIDE
     Indication: BLOOD PRESSURE
     Dosage: 2 MILLIGRAM
     Route: 048
     Dates: start: 20140829
  32. SOLDEM 3A [Concomitant]
     Active Substance: CARBOHYDRATES\POTASSIUM CHLORIDE\SODIUM CHLORIDE\SODIUM LACTATE
     Dosage: 500 MILLIGRAM
     Route: 041
     Dates: start: 20140820, end: 20140902
  33. PERINDOPRIL ERBUMINE. [Concomitant]
     Active Substance: PERINDOPRIL ERBUMINE
     Indication: HYPERTENSION
     Dosage: 4 MILLIGRAM
     Dates: start: 20140819, end: 20140821

REACTIONS (1)
  - Cerebral haemorrhage [Recovering/Resolving]

NARRATIVE: CASE EVENT DATE: 20140818
